FAERS Safety Report 11120300 (Version 1)
Quarter: 2015Q2

REPORT INFORMATION
  Report Type: Report from Study
  Country: US (occurrence: US)
  Receive Date: 20150518
  Receipt Date: 20150518
  Transmission Date: 20150821
  Serious: Yes (Death)
  Sender: FDA-Public Use
  Company Number: US-ACTELION-A-NJ2015-117924

PATIENT
  Age: 82 Year
  Sex: Female

DRUGS (13)
  1. TRACLEER [Suspect]
     Active Substance: BOSENTAN\BOSENTAN MONOHYDRATE
     Indication: PULMONARY ARTERIAL HYPERTENSION
     Dosage: UNK
     Route: 048
     Dates: end: 20150328
  2. KLOR-CON [Concomitant]
     Active Substance: POTASSIUM CHLORIDE
  3. PLAVIX [Concomitant]
     Active Substance: CLOPIDOGREL BISULFATE
  4. COENZYME Q10 [Concomitant]
     Active Substance: UBIDECARENONE
  5. SYNTHROID [Concomitant]
     Active Substance: LEVOTHYROXINE SODIUM
  6. PRANDIN [Concomitant]
     Active Substance: REPAGLINIDE
  7. COUMADIN [Concomitant]
     Active Substance: WARFARIN SODIUM
  8. CREON [Concomitant]
     Active Substance: PANCRELIPASE AMYLASE\PANCRELIPASE LIPASE\PANCRELIPASE PROTEASE
  9. COZAAR [Concomitant]
     Active Substance: LOSARTAN POTASSIUM
  10. LASIX [Concomitant]
     Active Substance: FUROSEMIDE
  11. METFORMIN [Concomitant]
     Active Substance: METFORMIN HYDROCHLORIDE
  12. PROTONIX [Concomitant]
     Active Substance: PANTOPRAZOLE SODIUM
  13. CALCIUM [Concomitant]
     Active Substance: CALCIUM

REACTIONS (2)
  - Cardiac valve disease [Fatal]
  - Cardiac failure congestive [Fatal]
